FAERS Safety Report 6584099-2 (Version None)
Quarter: 2010Q1

REPORT INFORMATION
  Report Type: 
  Country: None (occurrence: None)
  Receive Date: 20100216
  Receipt Date: 20091228
  Transmission Date: 20100710
  Serious: No
  Sender: FDA-Public Use
  Company Number: US-ABBOTT-09P-163-0616527-00

PATIENT
  Sex: Male
  Weight: 87.168 kg

DRUGS (20)
  1. SIMCOR [Suspect]
     Indication: HYPERLIPIDAEMIA
     Dates: start: 20091220
  2. NEXAVAR [Concomitant]
     Indication: DRUG USE FOR UNKNOWN INDICATION
  3. AVAPRO [Concomitant]
     Indication: DRUG USE FOR UNKNOWN INDICATION
  4. ALLOPURINOL [Concomitant]
     Indication: DRUG USE FOR UNKNOWN INDICATION
  5. CHTZ [Concomitant]
     Indication: DRUG USE FOR UNKNOWN INDICATION
  6. AMLODIPINE [Concomitant]
     Indication: DRUG USE FOR UNKNOWN INDICATION
  7. CARVEDILOL [Concomitant]
     Indication: DRUG USE FOR UNKNOWN INDICATION
  8. COQ10 [Concomitant]
     Indication: DRUG USE FOR UNKNOWN INDICATION
  9. BOTANICAL TREASURES [Concomitant]
     Indication: DRUG USE FOR UNKNOWN INDICATION
  10. LAMBOROKINASE [Concomitant]
     Indication: DRUG USE FOR UNKNOWN INDICATION
  11. FISH OIL [Concomitant]
     Indication: DRUG USE FOR UNKNOWN INDICATION
  12. HYCLEAR [Concomitant]
     Indication: DRUG USE FOR UNKNOWN INDICATION
  13. MAHOKINASE [Concomitant]
     Indication: DRUG USE FOR UNKNOWN INDICATION
  14. LIMPOTIC ACID [Concomitant]
     Indication: DRUG USE FOR UNKNOWN INDICATION
  15. ZINC CITRATE [Concomitant]
     Indication: DRUG USE FOR UNKNOWN INDICATION
  16. MOLYBDENUM PUICOLINATE [Concomitant]
     Indication: DRUG USE FOR UNKNOWN INDICATION
  17. BUTYREN [Concomitant]
     Indication: DRUG USE FOR UNKNOWN INDICATION
  18. AUTEMIS PLUS [Concomitant]
     Indication: DRUG USE FOR UNKNOWN INDICATION
  19. PHYTO-CYTO [Concomitant]
     Indication: DRUG USE FOR UNKNOWN INDICATION
  20. POWER ADAPT [Concomitant]
     Indication: DRUG USE FOR UNKNOWN INDICATION

REACTIONS (3)
  - CHILLS [None]
  - FLUSHING [None]
  - PRURITUS [None]
